FAERS Safety Report 20967420 (Version 3)
Quarter: 2022Q3

REPORT INFORMATION
  Report Type: Spontaneous
  Country: IE (occurrence: IE)
  Receive Date: 20220616
  Receipt Date: 20220705
  Transmission Date: 20221026
  Serious: Yes (Hospitalization, Other)
  Sender: FDA-Public Use
  Company Number: IE-SAMSUNG BIOEPIS-SB-2022-14211

PATIENT
  Age: 29 Year
  Sex: Female

DRUGS (3)
  1. ETANERCEPT [Suspect]
     Active Substance: ETANERCEPT
     Indication: Rheumatoid arthritis
     Dosage: UNKNOWN
     Route: 065
     Dates: start: 20220404
  2. HULIO [Suspect]
     Active Substance: ADALIMUMAB-FKJP
     Indication: Rheumatoid arthritis
     Dosage: UNKNOWN
     Route: 065
     Dates: end: 20220404
  3. HULIO [Suspect]
     Active Substance: ADALIMUMAB-FKJP
     Route: 065
     Dates: start: 20211018, end: 20220321

REACTIONS (2)
  - Neurosarcoidosis [Not Recovered/Not Resolved]
  - Neuromyelitis optica spectrum disorder [Not Recovered/Not Resolved]

NARRATIVE: CASE EVENT DATE: 20220513
